FAERS Safety Report 9280890 (Version 1)
Quarter: 2013Q2

REPORT INFORMATION
  Report Type: Spontaneous
  Country: US (occurrence: US)
  Receive Date: 20130509
  Receipt Date: 20130509
  Transmission Date: 20140414
  Serious: Yes (Hospitalization, Other)
  Sender: FDA-Public Use
  Company Number: US-BRISTOL-MYERS SQUIBB COMPANY-18850156

PATIENT
  Age: 71 Year
  Sex: Female

DRUGS (1)
  1. ABILIFY [Suspect]

REACTIONS (2)
  - Breast cancer [Unknown]
  - Self-injurious ideation [Unknown]
